FAERS Safety Report 21694336 (Version 1)
Quarter: 2022Q4

REPORT INFORMATION
  Report Type: Report from Study
  Country: FR (occurrence: FR)
  Receive Date: 20221207
  Receipt Date: 20221207
  Transmission Date: 20230113
  Serious: Yes (Other)
  Sender: FDA-Public Use
  Company Number: FR-JNJFOC-20221155366

PATIENT
  Age: 72 Year
  Sex: Male

DRUGS (3)
  1. DEXAMETHASONE [Suspect]
     Active Substance: DEXAMETHASONE
     Indication: Plasma cell myeloma
     Dosage: 1 DOSE/WEEK, 4 WEEK(S)/CYCLE
     Route: 065
     Dates: end: 20200925
  2. POMALIDOMIDE [Suspect]
     Active Substance: POMALIDOMIDE
     Indication: Plasma cell myeloma
     Dosage: 7 DOSE(S)/WEEK, 3 WEEK(S)/CYCLE
     Route: 065
     Dates: end: 20200925
  3. DARATUMUMAB [Suspect]
     Active Substance: DARATUMUMAB
     Indication: Plasma cell myeloma
     Dosage: 1 DOSE(S)/WEEK, 3 WEEK(S)/CYCLE
     Route: 065
     Dates: end: 20200925

REACTIONS (2)
  - Thrombosis [Unknown]
  - Infection [Unknown]

NARRATIVE: CASE EVENT DATE: 20200925
